FAERS Safety Report 6123603-5 (Version None)
Quarter: 2009Q1

REPORT INFORMATION
  Report Type: 
  Country: None (occurrence: None)
  Receive Date: 20090319
  Receipt Date: 20090310
  Transmission Date: 20090719
  Serious: Yes (Other)
  Sender: FDA-Public Use
  Company Number: PHEH2009US02468

PATIENT

DRUGS (2)
  1. AREDIA [Suspect]
     Indication: NEOPLASM MALIGNANT
  2. ZOMETA [Suspect]
     Indication: NEOPLASM MALIGNANT

REACTIONS (8)
  - ANHEDONIA [None]
  - ANXIETY [None]
  - DEFORMITY [None]
  - DISABILITY [None]
  - EATING DISORDER [None]
  - INJURY [None]
  - OSTEONECROSIS [None]
  - PAIN [None]
